FAERS Safety Report 11540388 (Version 1)
Quarter: 2015Q3

REPORT INFORMATION
  Report Type: Spontaneous
  Country: US (occurrence: US)
  Receive Date: 20150923
  Receipt Date: 20150923
  Transmission Date: 20151125
  Serious: No
  Sender: FDA-Public Use
  Company Number: US-BEH-2014045094

PATIENT
  Sex: Female

DRUGS (1)
  1. PRIVIGEN [Suspect]
     Active Substance: HUMAN IMMUNOGLOBULIN G
     Dosage: ??-DEC-2010 TO ??-APR-2013

REACTIONS (5)
  - Nausea [Unknown]
  - Photosensitivity reaction [Unknown]
  - Ocular hyperaemia [Unknown]
  - Headache [Unknown]
  - Vomiting [Unknown]
